FAERS Safety Report 13997380 (Version 1)
Quarter: 2017Q3

REPORT INFORMATION
  Report Type: Spontaneous
  Country: IT (occurrence: IT)
  Receive Date: 20170921
  Receipt Date: 20170921
  Transmission Date: 20171128
  Serious: Yes (Other)
  Sender: FDA-Public Use
  Company Number: PHHY2017IT137156

PATIENT
  Age: 35 Year
  Sex: Female

DRUGS (1)
  1. CIPROFLOXACIN. [Suspect]
     Active Substance: CIPROFLOXACIN
     Indication: DIVERTICULUM
     Dosage: 800 MG, QD
     Route: 042
     Dates: start: 20170410, end: 20170413

REACTIONS (2)
  - Injection site joint erythema [Recovered/Resolved]
  - Choking sensation [Unknown]

NARRATIVE: CASE EVENT DATE: 20170412
